FAERS Safety Report 9446832 (Version 1)
Quarter: 2013Q3

REPORT INFORMATION
  Report Type: Spontaneous
  Country: US (occurrence: US)
  Receive Date: 20130807
  Receipt Date: 20130807
  Transmission Date: 20140515
  Serious: Yes (Other)
  Sender: FDA-Public Use
  Company Number: US-FRI-1000047596

PATIENT
  Sex: Female

DRUGS (4)
  1. VIIBRYD [Suspect]
     Indication: DEPRESSION
     Dosage: 10MG
     Route: 048
     Dates: start: 201205, end: 2012
  2. VIIBRYD [Suspect]
     Dosage: 20MG
     Route: 048
     Dates: start: 2012, end: 2012
  3. VIIBRYD [Suspect]
     Dosage: 40MG
     Route: 048
     Dates: start: 2012
  4. SYNTHROID [Concomitant]
     Indication: HYPOTHYROIDISM
     Dosage: 125MCG

REACTIONS (3)
  - Diarrhoea haemorrhagic [Not Recovered/Not Resolved]
  - Gastrointestinal pain [Not Recovered/Not Resolved]
  - Diarrhoea [Recovered/Resolved]
